FAERS Safety Report 20812844 (Version 1)
Quarter: 2022Q2

REPORT INFORMATION
  Report Type: Spontaneous
  Country: US (occurrence: US)
  Receive Date: 20220511
  Receipt Date: 20220511
  Transmission Date: 20220721
  Serious: No
  Sender: FDA-Public Use
  Company Number: US-GLAXOSMITHKLINE-USCH2022016669

PATIENT
  Sex: Male

DRUGS (1)
  1. NICORETTE [Suspect]
     Active Substance: NICOTINE
     Indication: Smoking cessation therapy
     Dosage: UNK

REACTIONS (6)
  - Pyrexia [Unknown]
  - Illness [Unknown]
  - Nightmare [Unknown]
  - Hyperhidrosis [Unknown]
  - Irritability [Unknown]
  - Product use issue [Unknown]
